FAERS Safety Report 4947872-X (Version None)
Quarter: 2006Q1

REPORT INFORMATION
  Report Type: 
  Country: None (occurrence: None)
  Receive Date: 20060313
  Receipt Date: 20060227
  Transmission Date: 20060701
  Serious: Yes (Other)
  Sender: FDA-Public Use
  Company Number: GXKR2006GB01235

PATIENT
  Age: 34 Year
  Sex: Male

DRUGS (1)
  1. CITALOPRAM HYDROBROMIDE [Suspect]
     Indication: DEPRESSION
     Dosage: 1 DF, QD, ORAL
     Route: 048
     Dates: start: 19981008

REACTIONS (4)
  - DRUG WITHDRAWAL SYNDROME [None]
  - NEURITIS [None]
  - PARAESTHESIA [None]
  - SENSORY DISTURBANCE [None]
